FAERS Safety Report 9452747 (Version 1)
Quarter: 2013Q3

REPORT INFORMATION
  Report Type: Spontaneous
  Country: AU (occurrence: AU)
  Receive Date: 20130812
  Receipt Date: 20130812
  Transmission Date: 20140515
  Serious: Yes (Hospitalization, Disabling, Other)
  Sender: FDA-Public Use
  Company Number: AU-BAYER-2013-083778

PATIENT
  Sex: Male
  Weight: 77 kg

DRUGS (11)
  1. KOGENATE FS [Suspect]
     Indication: HAEMORRHAGE
     Dosage: PRE OP
     Route: 042
     Dates: start: 20130621
  2. KOGENATE FS [Suspect]
     Indication: FACTOR VIII DEFICIENCY
     Dosage: 1500
     Route: 042
     Dates: end: 20130702
  3. KOGENATE FS [Suspect]
     Indication: TOOTH EXTRACTION
     Dosage: 2000 IU X 2
     Route: 042
  4. KOGENATE FS [Suspect]
     Indication: COLECTOMY
     Dosage: 500 IU, UNK
  5. KOGENATE FS [Suspect]
     Indication: HAEMORRHAGE
     Dosage: 2000 IU, UNK
  6. KOGENATE FS [Suspect]
     Indication: HAEMORRHAGE
     Dosage: 2000 IU, UNK
  7. KOGENATE FS [Suspect]
     Indication: HAEMORRHAGE
     Dosage: UNK
     Dates: start: 20121107
  8. KOGENATE FS [Suspect]
     Indication: HAEMORRHAGE
     Dosage: UNK
     Dates: start: 20121108
  9. KOGENATE FS [Suspect]
     Indication: HAEMORRHAGE
     Dosage: 2000 IU X 2
     Dates: start: 20121106
  10. KOGENATE FS [Suspect]
     Indication: HAEMORRHAGE
     Dosage: 34000 IU, GIVEN IN ANOTHER HOSPITAL
     Dates: start: 201211
  11. MICARDIS PLUS [Concomitant]
     Indication: HYPERTENSION
     Dosage: DAILY, 4 YEARS

REACTIONS (3)
  - Haemophilia [Not Recovered/Not Resolved]
  - Anti factor VIII antibody positive [None]
  - Alopecia [None]
